FAERS Safety Report 12770988 (Version 1)
Quarter: 2016Q3

REPORT INFORMATION
  Report Type: Spontaneous
  Country: IT (occurrence: IT)
  Receive Date: 20160922
  Receipt Date: 20160922
  Transmission Date: 20161109
  Serious: Yes (Hospitalization)
  Sender: FDA-Public Use
  Company Number: IT-PFIZER INC-2016439632

PATIENT
  Age: 63 Year
  Sex: Female

DRUGS (6)
  1. INTERFERON BETA NOS [Concomitant]
     Active Substance: INTERFERON BETA
     Dosage: UNK
  2. LYRICA [Suspect]
     Active Substance: PREGABALIN
     Indication: TRIGEMINAL NEURALGIA
     Dosage: 375 MG, DAILY
     Route: 048
     Dates: start: 20160101, end: 20160503
  3. PALEXIA [Suspect]
     Active Substance: TAPENTADOL HYDROCHLORIDE
     Indication: TRIGEMINAL NEURALGIA
     Dosage: 200 MG, DAILY
     Route: 048
     Dates: start: 20160101, end: 20160503
  4. TOLEP [Suspect]
     Active Substance: OXCARBAZEPINE
     Indication: TRIGEMINAL NEURALGIA
     Dosage: 1800 MG, DAILY
     Route: 048
     Dates: start: 20160101, end: 20160503
  5. LIMBITRYL /00033501/ [Suspect]
     Active Substance: AMITRIPTYLINE HYDROCHLORIDE\CHLORDIAZEPOXIDE HYDROCHLORIDE
     Indication: TRIGEMINAL NEURALGIA
     Dosage: 1 DF, DAILY
     Route: 048
     Dates: start: 20160101, end: 20160503
  6. ULCEX /00550802/ [Concomitant]
     Dosage: UNK

REACTIONS (3)
  - Asthenia [Recovering/Resolving]
  - Confusional state [Recovering/Resolving]
  - Motor dysfunction [Recovering/Resolving]

NARRATIVE: CASE EVENT DATE: 20160301
